FAERS Safety Report 5366244-X (Version None)
Quarter: 2007Q2

REPORT INFORMATION
  Report Type: 
  Country: None (occurrence: None)
  Receive Date: 20070620
  Receipt Date: 20070620
  Transmission Date: 20071010
  Serious: Yes (Hospitalization)
  Sender: FDA-Public Use
  Company Number: None

PATIENT
  Age: 60 Year
  Sex: Female
  Weight: 86.3 kg

DRUGS (2)
  1. CETUXIMAB [Suspect]
     Indication: BREAST CANCER STAGE IV
     Dosage: 250 MG/M2 WEEKLY IV
     Route: 042
     Dates: start: 20070530, end: 20070606
  2. CARBOPLATIN [Suspect]
     Indication: BREAST CANCER STAGE IV
     Dosage: AUC2 3 OF 4 WEEKS IV
     Route: 042
     Dates: start: 20070516, end: 20070530

REACTIONS (2)
  - CHEST WALL MASS [None]
  - MASS [None]
